FAERS Safety Report 9212545 (Version 10)
Quarter: 2015Q2

REPORT INFORMATION
  Report Type: Spontaneous
  Country: DE (occurrence: DE)
  Receive Date: 20130405
  Receipt Date: 20150518
  Transmission Date: 20150821
  Serious: Yes (Hospitalization, Other)
  Sender: FDA-Public Use
  Company Number: DE-BIOGENIDEC-2013BI029125

PATIENT
  Age: 36 Year
  Sex: Female
  Weight: 50 kg

DRUGS (1)
  1. TYSABRI [Suspect]
     Active Substance: NATALIZUMAB
     Indication: MULTIPLE SCLEROSIS
     Route: 042
     Dates: start: 200707, end: 20130314

REACTIONS (7)
  - Immune reconstitution inflammatory syndrome [Recovered/Resolved]
  - Asthma [Unknown]
  - Weight decreased [Unknown]
  - Progressive multifocal leukoencephalopathy [Recovered/Resolved]
  - Off label use [Recovered/Resolved]
  - Multiple sclerosis relapse [Recovered/Resolved]
  - Bronchopneumonia [Unknown]

NARRATIVE: CASE EVENT DATE: 2007
